FAERS Safety Report 6340896-X (Version None)
Quarter: 2009Q3

REPORT INFORMATION
  Report Type: 
  Country: None (occurrence: None)
  Receive Date: 20090904
  Receipt Date: 20090827
  Transmission Date: 20100115
  Serious: Yes (Hospitalization)
  Sender: FDA-Public Use
  Company Number: DK-AVENTIS-200918311GDDC

PATIENT
  Age: 30 Year
  Sex: Female

DRUGS (6)
  1. LANTUS [Suspect]
     Route: 058
  2. ACTRAPID [Concomitant]
     Route: 058
  3. METHYLDOPA [Concomitant]
     Indication: HYPERTENSION
     Route: 048
     Dates: start: 20090622
  4. ELTROXIN [Concomitant]
     Indication: MYXOEDEMA
     Route: 048
  5. VITAMINS [Concomitant]
     Indication: NUTRITIONAL SUPPORT
     Route: 048
  6. TRANDATE [Concomitant]
     Indication: HYPERTENSION
     Route: 048
     Dates: start: 20090717, end: 20090717

REACTIONS (3)
  - DRUG EXPOSURE DURING PREGNANCY [None]
  - PRE-ECLAMPSIA [None]
  - PREMATURE LABOUR [None]
